FAERS Safety Report 5198926-7 (Version None)
Quarter: 2006Q4

REPORT INFORMATION
  Report Type: 
  Country: None (occurrence: None)
  Receive Date: 20060921
  Receipt Date: 20060802
  Transmission Date: 20070319
  Serious: Yes (Other)
  Sender: FDA-Public Use
  Company Number: PHEH2006US08949

PATIENT
  Age: 86 Year
  Sex: Female
  Weight: 61.2 kg

DRUGS (5)
  1. ZELNORM [Suspect]
     Indication: CONSTIPATION
     Dosage: 2 MG, ONCE/SINGLE, ORAL
     Route: 048
     Dates: start: 20060711, end: 20060711
  2. ACTONEL [Concomitant]
  3. CARDIZEM [Concomitant]
  4. DYAZIDE [Concomitant]
  5. DIGOXIN [Concomitant]

REACTIONS (3)
  - ASTHENIA [None]
  - DIARRHOEA [None]
  - TREMOR [None]
